FAERS Safety Report 9452649 (Version 2)
Quarter: 2013Q4

REPORT INFORMATION
  Report Type: Spontaneous
  Country: BR (occurrence: BR)
  Receive Date: 20130812
  Receipt Date: 20131217
  Transmission Date: 20140711
  Serious: Yes (Other)
  Sender: FDA-Public Use
  Company Number: BR-AMGEN-BRASP2012008423

PATIENT
  Age: 49 Year
  Sex: Female
  Weight: 54 kg

DRUGS (12)
  1. ENBREL [Suspect]
     Indication: PSORIATIC ARTHROPATHY
     Dosage: 50 MG, QWK
     Route: 058
     Dates: start: 2010, end: 201111
  2. ENBREL [Suspect]
     Dosage: 50 MG, ONCE WEEKLY
     Route: 058
     Dates: start: 201306
  3. ENBREL [Suspect]
     Dosage: UNK
     Route: 065
  4. ENBREL [Suspect]
     Dosage: UNK
     Route: 065
  5. SERTRALINE [Concomitant]
     Indication: ANXIETY
     Dosage: 50 MG, 1X/DAY
     Dates: start: 201010
  6. PREDNISONE [Concomitant]
     Indication: PSORIATIC ARTHROPATHY
     Dosage: 2.5 MG (HALF OF TABLET OF 5MG), ALTERNATE DAY
     Dates: start: 201011
  7. OMEPRAZOLE [Concomitant]
     Dosage: 20 MG, 1X/DAY
  8. MELOXICAM [Concomitant]
     Dosage: 15 MG, 1X/DAY
  9. CYCLOBENZAPRINE HYDROCHLORIDE [Concomitant]
     Indication: MYALGIA
     Dosage: 5 MG, 1X/DAY
  10. PARACETAMOL [Concomitant]
     Indication: PAIN
     Dosage: UNK
  11. SIMVASTATIN [Concomitant]
     Dosage: 20 MG, 1X/AT NIGHT
  12. DULOXETINE HYDROCHLORIDE [Concomitant]
     Dosage: 50 MG, 1X/DAY

REACTIONS (16)
  - Amenorrhoea [Unknown]
  - Haemorrhage [Unknown]
  - Pharyngeal inflammation [Unknown]
  - Dizziness [Unknown]
  - Headache [Not Recovered/Not Resolved]
  - Decreased appetite [Not Recovered/Not Resolved]
  - Dysgeusia [Unknown]
  - Back pain [Unknown]
  - High density lipoprotein abnormal [Unknown]
  - Low density lipoprotein abnormal [Unknown]
  - Red blood cell sedimentation rate abnormal [Unknown]
  - Anaemia [Unknown]
  - Injection site erythema [Unknown]
  - Injection site pruritus [Unknown]
  - Inflammation [Unknown]
  - Drug effect incomplete [Unknown]
